FAERS Safety Report 25131855 (Version 1)
Quarter: 2025Q1

REPORT INFORMATION
  Report Type: Spontaneous
  Country: JP (occurrence: JP)
  Receive Date: 20250327
  Receipt Date: 20250327
  Transmission Date: 20250409
  Serious: Yes (Death)
  Sender: NOVARTIS
  Company Number: JP-002147023-NVSJ2025JP003653

PATIENT
  Sex: Male

DRUGS (1)
  1. KESIMPTA [Suspect]
     Active Substance: OFATUMUMAB
     Indication: Secondary progressive multiple sclerosis
     Route: 058
     Dates: start: 202501, end: 202501

REACTIONS (2)
  - Pneumonia bacterial [Fatal]
  - Coronavirus infection [Unknown]

NARRATIVE: CASE EVENT DATE: 20250201
